FAERS Safety Report 18152703 (Version 3)
Quarter: 2020Q4

REPORT INFORMATION
  Report Type: Spontaneous
  Country: FI (occurrence: FI)
  Receive Date: 20200814
  Receipt Date: 20201106
  Transmission Date: 20210113
  Serious: Yes (Other)
  Sender: FDA-Public Use
  Company Number: FI-BRISTOL-MYERS SQUIBB COMPANY-BMS-2020-063970

PATIENT
  Age: 63 Year
  Sex: Male

DRUGS (11)
  1. OPDIVO [Suspect]
     Active Substance: NIVOLUMAB
     Indication: RENAL CELL CARCINOMA
     Dosage: 240 MILLIGRAM, Q2WK
     Route: 042
     Dates: start: 20200706
  2. OPDIVO [Suspect]
     Active Substance: NIVOLUMAB
     Dosage: 240 MILLIGRAM, Q2WK
     Route: 042
     Dates: start: 20200721
  3. OPDIVO [Suspect]
     Active Substance: NIVOLUMAB
     Dosage: 240 MILLIGRAM, Q2WK
     Route: 042
     Dates: start: 20200804
  4. MEDITHYROX [Concomitant]
     Indication: PRODUCT USED FOR UNKNOWN INDICATION
     Dosage: 75 MICROGRAM, X1 2DAYS/WEEK 100 FOL
     Route: 065
  5. IMODIUM [Concomitant]
     Active Substance: LOPERAMIDE HYDROCHLORIDE
     Indication: PRODUCT USED FOR UNKNOWN INDICATION
     Dosage: 1 DOSAGE FORM, 1 CAPSULE WHEN NEEDED, SINGLE DOSE MAX: 2 CAPSULES, DAILY MAX: 8 CAPSULES, HARD, 30 F
     Route: 065
  6. SIR. EPHEDRIN [Concomitant]
     Indication: PRODUCT USED FOR UNKNOWN INDICATION
     Dosage: 500 MILLILITER, LIQUID (10 ML WHEN NEEDED , SINGLE DOSE MAX: 10 ML, DAILY MAX: 30 ML)
     Route: 048
  7. HIDRASEC [Concomitant]
     Active Substance: RACECADOTRIL
     Indication: PRODUCT USED FOR UNKNOWN INDICATION
     Dosage: 1 DOSAGE FORM, 1 CAPSULE WHEN NEEDED , DAILY MAX: 3 CAPSULES, HARD 20 FOL
     Route: 065
  8. LOSATRIX [Concomitant]
     Active Substance: LOSARTAN POTASSIUM
     Indication: PRODUCT USED FOR UNKNOWN INDICATION
     Dosage: 1 DOSAGE FORM, QD (100 FOL), PAUSED SINCE 21-JUL-2020
     Route: 065
  9. MEDITHYROX [Concomitant]
     Dosage: 100 MICROGRAM, X1 5DAYS/WEEKS
     Route: 065
  10. OXYNORM [Concomitant]
     Active Substance: OXYCODONE HYDROCHLORIDE
     Indication: PRODUCT USED FOR UNKNOWN INDICATION
     Dosage: 5 MILLIGRAM, 5 MG WHEN NEEDED , DAILY MAX: 20 MG
     Route: 065
  11. SEDONIUM [Concomitant]
     Indication: PRODUCT USED FOR UNKNOWN INDICATION
     Dosage: 1 DOSAGE FORM, COVER 50 FOL (WHEN NEEDED, SINGLE DOSE MAX: 2 TABLET, DAILY MAX: 4 TABLET)
     Route: 065

REACTIONS (11)
  - Dyspnoea [Unknown]
  - Heart rate increased [Unknown]
  - Tremor [Unknown]
  - Cyanosis [Unknown]
  - Erythema [Unknown]
  - Back pain [Unknown]
  - Cough [Unknown]
  - Myalgia [Unknown]
  - Blood pressure increased [Unknown]
  - Malignant neoplasm progression [Unknown]
  - Chills [Recovered/Resolved]
